FAERS Safety Report 10074966 (Version 2)
Quarter: 2014Q2

REPORT INFORMATION
  Report Type: Spontaneous
  Country: US (occurrence: US)
  Receive Date: 20140414
  Receipt Date: 20140423
  Transmission Date: 20141212
  Serious: No
  Sender: FDA-Public Use
  Company Number: US-BIOGENIDEC-2014BI027957

PATIENT
  Age: 47 Year
  Sex: Male

DRUGS (1)
  1. TECFIDERA [Suspect]
     Indication: MULTIPLE SCLEROSIS
     Dates: start: 20140314

REACTIONS (11)
  - Headache [Unknown]
  - Paraesthesia [Not Recovered/Not Resolved]
  - Hypoaesthesia [Not Recovered/Not Resolved]
  - Drug intolerance [Not Recovered/Not Resolved]
  - Influenza [Unknown]
  - Balance disorder [Unknown]
  - Gait disturbance [Unknown]
  - Flushing [Recovered/Resolved]
  - Gastrointestinal disorder [Unknown]
  - Vomiting [Unknown]
  - Multiple sclerosis relapse [Unknown]
